FAERS Safety Report 7247526-3 (Version None)
Quarter: 2011Q1

REPORT INFORMATION
  Report Type: 
  Country: None (occurrence: None)
  Receive Date: 20110127
  Receipt Date: 20110118
  Transmission Date: 20110831
  Serious: No
  Sender: FDA-Public Use
  Company Number: US-MYLANLABS-2010S1020435

PATIENT
  Sex: Female

DRUGS (10)
  1. BISOPROLOL FUMARATE [Suspect]
     Indication: BLOOD PRESSURE INCREASED
     Route: 048
     Dates: start: 20090107, end: 20101123
  2. CRESTOR [Concomitant]
     Dates: start: 20100329
  3. ASPIRIN [Concomitant]
     Dates: start: 20050801
  4. TOPROL-XL [Suspect]
     Route: 048
  5. MULTIVITAMIN [Concomitant]
  6. FISH OIL [Concomitant]
     Dates: start: 20050801
  7. PLAVIX [Concomitant]
     Dates: start: 20060501
  8. PRILOSEC [Concomitant]
  9. TOPROL-XL [Suspect]
     Indication: BLOOD PRESSURE INCREASED
     Route: 048
     Dates: end: 20100101
  10. SINGULAIR [Concomitant]

REACTIONS (1)
  - NAIL GROWTH ABNORMAL [None]
